FAERS Safety Report 5447234-5 (Version None)
Quarter: 2007Q3

REPORT INFORMATION
  Report Type: 
  Country: None (occurrence: None)
  Receive Date: 20070910
  Receipt Date: 20070828
  Transmission Date: 20080115
  Serious: Yes (Hospitalization)
  Sender: FDA-Public Use
  Company Number: US-ELI_LILLY_AND_COMPANY-US200706002939

PATIENT
  Age: 24 Year
  Sex: Female
  Weight: 117.91 kg

DRUGS (6)
  1. ZYPREXA [Suspect]
     Indication: SCHIZOPHRENIA
     Dosage: 10 MG, 2/D
     Dates: start: 19930101
  2. ZYPREXA [Suspect]
     Dosage: UNK MG, UNK
     Dates: start: 19940101, end: 19990101
  3. ZYPREXA [Suspect]
     Dosage: 30 MG, UNK
     Dates: start: 20030101, end: 20060101
  4. LITHIUM CARBONATE [Concomitant]
     Dosage: UNK, UNK
     Dates: start: 20060801, end: 20060901
  5. HALOPERIDOL [Concomitant]
     Dates: start: 19940101, end: 19940101
  6. FLUOXETINE [Concomitant]
     Dosage: UNK, UNK
     Dates: start: 19950101

REACTIONS (4)
  - DIABETES MELLITUS [None]
  - OVERDOSE [None]
  - THERAPY CESSATION [None]
  - WEIGHT INCREASED [None]
